FAERS Safety Report 5458021-6 (Version None)
Quarter: 2007Q3

REPORT INFORMATION
  Report Type: 
  Country: None (occurrence: None)
  Receive Date: 20070917
  Receipt Date: 20070906
  Transmission Date: 20080115
  Serious: Yes (Hospitalization)
  Sender: FDA-Public Use
  Company Number: 2007SP017877

PATIENT
  Age: 70 Year
  Sex: Male
  Weight: 101 kg

DRUGS (9)
  1. EPTIFIBATIDE (S-P) (EPTIFIBATIDE) [Suspect]
     Indication: ACUTE CORONARY SYNDROME
     Dosage: 2 MCG/KG; ; IV
     Route: 042
     Dates: start: 20070903, end: 20070904
  2. ASPIRIN [Concomitant]
  3. ATORVASTATIN CALCIUM [Concomitant]
  4. CLOPIDOGREL [Concomitant]
  5. METFORMIN HCL [Concomitant]
  6. METOPROLOL [Concomitant]
  7. RABEPRAZOLE SODIUM [Concomitant]
  8. RAMIPRIL [Concomitant]
  9. AVANDIA [Concomitant]

REACTIONS (6)
  - ARTHRALGIA [None]
  - CATHETER SITE HAEMATOMA [None]
  - CATHETER SITE HAEMORRHAGE [None]
  - GOUT [None]
  - RETROPERITONEAL HAEMORRHAGE [None]
  - WEIGHT BEARING DIFFICULTY [None]
